FAERS Safety Report 18206811 (Version 3)
Quarter: 2022Q2

REPORT INFORMATION
  Report Type: Spontaneous
  Country: PL (occurrence: PL)
  Receive Date: 20200828
  Receipt Date: 20220616
  Transmission Date: 20220721
  Serious: Yes (Life-Threatening, Hospitalization, Other)
  Sender: FDA-Public Use
  Company Number: PL-MLMSERVICE-20200818-2445007-1

PATIENT
  Age: 15 Year
  Sex: Male

DRUGS (10)
  1. CYTARABINE [Suspect]
     Active Substance: CYTARABINE
     Indication: B precursor type acute leukaemia
     Dosage: UNK, CYCLIC
     Dates: start: 2017
  2. METHOTREXATE [Suspect]
     Active Substance: METHOTREXATE
     Indication: B precursor type acute leukaemia
     Dosage: UNK
     Route: 037
     Dates: start: 201612
  3. METHOTREXATE [Suspect]
     Active Substance: METHOTREXATE
     Dosage: UNK, CYCLIC
     Route: 037
     Dates: start: 2017
  4. VINCRISTINE [Suspect]
     Active Substance: VINCRISTINE
     Indication: B precursor type acute leukaemia
     Dosage: UNK, CYCLIC (INDUCTION THERAPY ONCE PER WEEK WITH FOUR TOTAL DOSES)
  5. PREDNISONE [Suspect]
     Active Substance: PREDNISONE
     Indication: B precursor type acute leukaemia
     Dosage: UNK, CYCLIC (CYTOREDUCTIVE PREDNISONE PROPHASE)
     Dates: start: 201612
  6. CYCLOPHOSPHAMIDE [Suspect]
     Active Substance: CYCLOPHOSPHAMIDE
     Indication: B precursor type acute leukaemia
     Dosage: UNK, CYCLIC
     Dates: start: 2017
  7. MERCAPTOPURINE [Suspect]
     Active Substance: MERCAPTOPURINE
     Indication: B precursor type acute leukaemia
     Dosage: UNK, CYCLIC
     Route: 048
     Dates: start: 2017
  8. PREDNISOLONE [Suspect]
     Active Substance: PREDNISOLONE
     Indication: B precursor type acute leukaemia
     Dosage: UNK UNK, CYCLIC (INDUCTION THERAPY ONCE PER WEEK WITH FOUR TOTAL DOSES)
  9. ASPARAGINASE [Suspect]
     Active Substance: ASPARAGINASE
     Indication: B precursor type acute leukaemia
     Dosage: 8 DF (FREQ:{TOTAL};ESCHERICHIA COLI DERIVED L-ASPARAGINASE)
  10. DAUNORUBICIN [Suspect]
     Active Substance: DAUNORUBICIN
     Indication: B precursor type acute leukaemia
     Dosage: UNK, CYCLIC (INDUCTION THERAPY ONCE PER WEEK WITH FOUR TOTAL DOSES)

REACTIONS (7)
  - Haemophagocytic lymphohistiocytosis [Recovered/Resolved]
  - Oedema peripheral [Recovered/Resolved]
  - Hydrothorax [Recovered/Resolved]
  - Pancytopenia [Recovered/Resolved]
  - Xanthogranuloma [Recovered/Resolved]
  - Tuberculosis [Recovered/Resolved]
  - Protein-losing gastroenteropathy [Recovered/Resolved]

NARRATIVE: CASE EVENT DATE: 20170301
